FAERS Safety Report 25536919 (Version 1)
Quarter: 2025Q3

REPORT INFORMATION
  Report Type: Other
  Country: CN (occurrence: CN)
  Receive Date: 20250710
  Receipt Date: 20250710
  Transmission Date: 20251020
  Serious: Yes (Hospitalization, Other)
  Sender: LYNE LABORATORIES
  Company Number: CN-Lyne Laboratories Inc.-2180229

PATIENT
  Age: 31 Year
  Sex: Female

DRUGS (3)
  1. DEXAMETHASONE [Suspect]
     Active Substance: DEXAMETHASONE
     Indication: COVID-19
  2. TEMOZOLOMIDE [Concomitant]
     Active Substance: TEMOZOLOMIDE
  3. BEVACIZUMAB [Concomitant]
     Active Substance: BEVACIZUMAB

REACTIONS (4)
  - Glioblastoma [Unknown]
  - Product use in unapproved indication [Unknown]
  - Metastasis [Unknown]
  - Condition aggravated [Unknown]
